FAERS Safety Report 4315478-1 (Version None)
Quarter: 2004Q1

REPORT INFORMATION
  Report Type: 
  Country: None (occurrence: None)
  Receive Date: 20040309
  Receipt Date: 20040223
  Transmission Date: 20041129
  Serious: Yes (Hospitalization, Other)
  Sender: FDA-Public Use
  Company Number: 167528

PATIENT
  Age: 51 Year
  Sex: Female
  Weight: 90.7194 kg

DRUGS (9)
  1. AVONEX [Suspect]
     Indication: MULTIPLE SCLEROSIS
     Dosage: 30 MCG QW IM
     Route: 030
     Dates: start: 19991224, end: 20030101
  2. PRILOSEC [Concomitant]
  3. LASIX [Concomitant]
  4. K-DUR 10 [Concomitant]
  5. GLUCOTROL [Concomitant]
  6. ZESTRIL [Concomitant]
  7. ZOLOFT [Concomitant]
  8. DETROL [Concomitant]
  9. PREVACID [Concomitant]

REACTIONS (6)
  - ANAEMIA [None]
  - COLON CANCER [None]
  - DIABETES MELLITUS [None]
  - FULL BLOOD COUNT ABNORMAL [None]
  - GASTROINTESTINAL HAEMORRHAGE [None]
  - POST PROCEDURAL HAEMORRHAGE [None]
